FAERS Safety Report 14278983 (Version 2)
Quarter: 2017Q4

REPORT INFORMATION
  Report Type: Report from Study
  Country: None (occurrence: GB)
  Receive Date: 20171213
  Receipt Date: 20171221
  Transmission Date: 20180321
  Serious: Yes (Hospitalization)
  Sender: FDA-Public Use
  Company Number: GB-ABBVIE-17K-167-2190877-00

PATIENT
  Age: 26 Year
  Sex: Female
  Weight: 100 kg

DRUGS (1)
  1. HUMIRA [Suspect]
     Active Substance: ADALIMUMAB
     Indication: PRODUCT USED FOR UNKNOWN INDICATION
     Route: 058
     Dates: start: 20171010

REACTIONS (10)
  - Blood creatinine decreased [Unknown]
  - Blood urea decreased [Unknown]
  - Blood phosphorus decreased [Unknown]
  - Lymphocyte count increased [Unknown]
  - C-reactive protein increased [Unknown]
  - White blood cell count increased [Unknown]
  - Abdominal pain [Unknown]
  - Incarcerated incisional hernia [Recovered/Resolved]
  - Blood bicarbonate decreased [Unknown]
  - Neutrophil count increased [Unknown]

NARRATIVE: CASE EVENT DATE: 2017
